FAERS Safety Report 16694392 (Version 3)
Quarter: 2019Q4

REPORT INFORMATION
  Report Type: Spontaneous
  Country: US (occurrence: US)
  Receive Date: 20190812
  Receipt Date: 20191112
  Transmission Date: 20200122
  Serious: No
  Sender: FDA-Public Use
  Company Number: US-LEXICON PHARMACEUTICALS, INC-19-1606-00778

PATIENT
  Sex: Female

DRUGS (17)
  1. ALENDRONATE [Concomitant]
     Active Substance: ALENDRONATE SODIUM
  2. NITROSTAT [Concomitant]
     Active Substance: NITROGLYCERIN
  3. METFORMIN [Concomitant]
     Active Substance: METFORMIN HYDROCHLORIDE
  4. ISOSORBIDE MONONITRATE. [Concomitant]
     Active Substance: ISOSORBIDE MONONITRATE
  5. NOVOLOG [Concomitant]
     Active Substance: INSULIN ASPART
  6. SYMBICORT [Concomitant]
     Active Substance: BUDESONIDE\FORMOTEROL FUMARATE DIHYDRATE
  7. CLONIDINE. [Concomitant]
     Active Substance: CLONIDINE
  8. LEVEMIR [Concomitant]
     Active Substance: INSULIN DETEMIR
  9. PLAVIX [Concomitant]
     Active Substance: CLOPIDOGREL BISULFATE
  10. TELOTRISTAT ETHYL [Suspect]
     Active Substance: TELOTRISTAT ETHYL
     Indication: NEUROENDOCRINE TUMOUR
     Route: 048
     Dates: start: 20190712
  11. INVOKANA [Concomitant]
     Active Substance: CANAGLIFLOZIN
  12. ATORVASTATIN [Concomitant]
     Active Substance: ATORVASTATIN
  13. LOSARTAN. [Concomitant]
     Active Substance: LOSARTAN
  14. PANTOPRAZOLE [Concomitant]
     Active Substance: PANTOPRAZOLE
  15. TYLENOL [Concomitant]
     Active Substance: ACETAMINOPHEN
  16. FAMOTIDINE. [Concomitant]
     Active Substance: FAMOTIDINE
  17. MONTELUKAST [Concomitant]
     Active Substance: MONTELUKAST SODIUM

REACTIONS (2)
  - Diarrhoea [Unknown]
  - Diarrhoea [Recovered/Resolved]

NARRATIVE: CASE EVENT DATE: 2019
